FAERS Safety Report 16580406 (Version 1)
Quarter: 2019Q3

REPORT INFORMATION
  Report Type: Report from Study
  Country: EG (occurrence: EG)
  Receive Date: 20190716
  Receipt Date: 20190716
  Transmission Date: 20191004
  Serious: Yes (Other)
  Sender: FDA-Public Use
  Company Number: PHHY2019EG161936

PATIENT
  Age: 3 Year
  Sex: Male

DRUGS (3)
  1. MYCOSTATIN [Concomitant]
     Active Substance: NYSTATIN
     Indication: PROPHYLAXIS
     Dosage: 1.5 ML, TID
     Route: 065
     Dates: start: 2016
  2. L-CARNITINE [Concomitant]
     Active Substance: LEVOCARNITINE
     Indication: PRODUCT USED FOR UNKNOWN INDICATION
     Dosage: 2 OT(DROPS), QD
     Route: 065
     Dates: start: 2016
  3. AFINITOR [Suspect]
     Active Substance: EVEROLIMUS
     Indication: BRAIN CANCER METASTATIC
     Dosage: 5 MG, QD (5MG/HALF TABLET ONCE DAILY)
     Route: 065
     Dates: start: 201607

REACTIONS (7)
  - Calcium deficiency [Recovering/Resolving]
  - Chapped lips [Not Recovered/Not Resolved]
  - Haemoglobin decreased [Recovering/Resolving]
  - Blood iron decreased [Not Recovered/Not Resolved]
  - Product use in unapproved indication [Not Recovered/Not Resolved]
  - Immunodeficiency [Not Recovered/Not Resolved]
  - Toothache [Recovering/Resolving]

NARRATIVE: CASE EVENT DATE: 201607
